FAERS Safety Report 6804088-X (Version None)
Quarter: 2010Q2

REPORT INFORMATION
  Report Type: 
  Country: None (occurrence: None)
  Receive Date: 20100628
  Receipt Date: 20060825
  Transmission Date: 20101027
  Serious: Yes (Other)
  Sender: FDA-Public Use
  Company Number: US-PFIZER INC-2006104695

PATIENT
  Age: 59 Year
  Sex: Female

DRUGS (2)
  1. SUTENT [Suspect]
     Indication: OVARIAN CANCER
     Route: 065
  2. LOVENOX [Concomitant]
     Route: 065

REACTIONS (1)
  - LIPASE INCREASED [None]
